FAERS Safety Report 5560949-3 (Version None)
Quarter: 2007Q4

REPORT INFORMATION
  Report Type: 
  Country: None (occurrence: None)
  Receive Date: 20071215
  Receipt Date: 20071129
  Transmission Date: 20080405
  Serious: No
  Sender: FDA-Public Use
  Company Number: US-ABBOTT-07P-163-0427160-00

PATIENT
  Sex: Male
  Weight: 95.3 kg

DRUGS (3)
  1. HUMIRA [Suspect]
     Indication: SWEAT GLAND INFECTION
     Route: 058
     Dates: start: 20070801, end: 20071001
  2. HUMIRA [Suspect]
     Route: 058
     Dates: start: 20071001
  3. PREDNISONE [Concomitant]
     Indication: SWEAT GLAND INFECTION
     Route: 048

REACTIONS (2)
  - DRUG INEFFECTIVE [None]
  - HEADACHE [None]
